FAERS Safety Report 9447350 (Version 1)
Quarter: 2013Q3

REPORT INFORMATION
  Report Type: Spontaneous
  Country: NZ (occurrence: NZ)
  Receive Date: 20130808
  Receipt Date: 20130808
  Transmission Date: 20140515
  Serious: Yes (Disabling)
  Sender: FDA-Public Use
  Company Number: NZ-009507513-1307NZL016905

PATIENT
  Age: 77 Year
  Sex: Male

DRUGS (1)
  1. SINEMET [Suspect]
     Route: 048

REACTIONS (4)
  - Condition aggravated [Unknown]
  - Tremor [Unknown]
  - Drug effect delayed [Unknown]
  - Drug effect decreased [Unknown]
